FAERS Safety Report 19817002 (Version 1)
Quarter: 2021Q3

REPORT INFORMATION
  Report Type: Spontaneous
  Country: CA (occurrence: CA)
  Receive Date: 20210910
  Receipt Date: 20210910
  Transmission Date: 20211014
  Serious: Yes (Other)
  Sender: FDA-Public Use
  Company Number: CA-BRISTOL-MYERS SQUIBB COMPANY-BMS-2021-090459

PATIENT
  Sex: Male

DRUGS (2)
  1. DASATINIB. [Suspect]
     Active Substance: DASATINIB
     Dosage: 70MG, 1 EVERY 24 HOURS
     Route: 048
  2. DASATINIB. [Suspect]
     Active Substance: DASATINIB
     Indication: LEUKAEMIA
     Route: 065

REACTIONS (1)
  - Lung disorder [Unknown]
